FAERS Safety Report 8326614-4 (Version None)
Quarter: 2012Q2

REPORT INFORMATION
  Report Type: 
  Country: None (occurrence: None)
  Receive Date: 20120501
  Receipt Date: 20110707
  Transmission Date: 20120825
  Serious: No
  Sender: FDA-Public Use
  Company Number: US-SANOFI-AVENTIS-2011SA043636

PATIENT
  Sex: Female

DRUGS (2)
  1. APIDRA [Suspect]
     Dosage: DOSE:2 UNIT(S)
     Route: 058
     Dates: start: 20060101
  2. OPTICLICK [Suspect]
     Dates: start: 20060101

REACTIONS (1)
  - VISUAL IMPAIRMENT [None]
